FAERS Safety Report 18607644 (Version 1)
Quarter: 2020Q4

REPORT INFORMATION
  Report Type: Report from Study
  Country: PT (occurrence: PT)
  Receive Date: 20201211
  Receipt Date: 20201211
  Transmission Date: 20210114
  Serious: Yes (Hospitalization)
  Sender: FDA-Public Use
  Company Number: PT-MYLANLABS-2019M1076131

PATIENT
  Age: 57 Year
  Sex: Female

DRUGS (44)
  1. PACLITAXEL. [Suspect]
     Active Substance: PACLITAXEL
     Indication: HER2 POSITIVE BREAST CANCER
     Dosage: 80 MILLIGRAM/SQ. METER, QW
     Route: 042
     Dates: start: 20170622, end: 20170907
  2. ARIMIDEX [Suspect]
     Active Substance: ANASTROZOLE
     Indication: HER2 POSITIVE BREAST CANCER
     Dosage: 1 MILLIGRAM, QD
     Route: 048
     Dates: start: 20171106
  3. MIDAZOLAM                          /00634103/ [Concomitant]
     Active Substance: MIDAZOLAM HYDROCHLORIDE
     Dosage: UNK
     Route: 065
     Dates: start: 20171004
  4. MOMETASONE [Concomitant]
     Active Substance: MOMETASONE
     Dosage: UNK, ONGOING = NOT CHECKED
     Dates: start: 20181003, end: 20181010
  5. PIPERACILLIN. [Concomitant]
     Active Substance: PIPERACILLIN SODIUM
     Indication: PNEUMONIA
     Dosage: UNK, ONGOING = NOT CHECKED
     Dates: start: 20180219, end: 20180221
  6. ETORICOXIB. [Concomitant]
     Active Substance: ETORICOXIB
     Dosage: UNK
     Route: 065
  7. ENOXAPARIN [Concomitant]
     Active Substance: ENOXAPARIN
     Indication: PNEUMONIA
     Dosage: UNK, ONGOING = CHECKED
     Dates: start: 20180219
  8. AMOXICILLIN AND CLAVULANATE POTASSIUM [Concomitant]
     Active Substance: AMOXICILLIN\CLAVULANATE POTASSIUM
     Dosage: UNK, ONGOING = NOT CHECKED
     Dates: start: 20181003, end: 20181015
  9. COSOPT [Concomitant]
     Active Substance: DORZOLAMIDE HYDROCHLORIDE\TIMOLOL MALEATE
     Dosage: UNK
     Route: 065
  10. ATORVASTATIN [Concomitant]
     Active Substance: ATORVASTATIN
     Dosage: UNK
     Route: 065
  11. PANTHENOL [Concomitant]
     Active Substance: PANTHENOL
     Dosage: UNK
     Route: 065
     Dates: start: 20180131, end: 20180615
  12. CLAVULANIC ACID [Concomitant]
     Active Substance: CLAVULANIC ACID
     Indication: PNEUMONIA
     Dosage: UNK, ONGOING = NOT CHECKED
     Dates: start: 20180215, end: 20180615
  13. ATROPINE. [Concomitant]
     Active Substance: ATROPINE
     Dosage: UNK, ONGOING = NOT CHECKED
     Dates: start: 20171004, end: 20171004
  14. PARACETAMOL [Concomitant]
     Active Substance: ACETAMINOPHEN
     Dosage: UNK, ONGOING = NOT CHECKED
     Dates: start: 20170717, end: 20170721
  15. FUCICORT [Concomitant]
     Active Substance: BETAMETHASONE VALERATE\FUSIDIC ACID
     Indication: FURUNCLE
     Dosage: UNK ONGOING = NOT CHECKED
     Dates: start: 20170629, end: 20170817
  16. SUGAMMADEX [Concomitant]
     Active Substance: SUGAMMADEX
     Dosage: UNK, ONGOING = NOT CHECKED
     Dates: start: 20171004, end: 20171004
  17. TRAZODONE [Concomitant]
     Active Substance: TRAZODONE HYDROCHLORIDE
     Dosage: UNK, ONGOING = CHECKED
     Dates: start: 20190212
  18. SEDOXIL [Concomitant]
     Active Substance: MEXAZOLAM
     Dosage: UNK, ONGOING = CHECKED
     Dates: start: 20190212
  19. RUBEX [Suspect]
     Active Substance: DOXORUBICIN HYDROCHLORIDE
     Indication: HER2 POSITIVE BREAST CANCER
     Dosage: 98 MILLIGRAM, 3XW
     Route: 042
     Dates: start: 20170331, end: 20170601
  20. SPIRIVA [Concomitant]
     Active Substance: TIOTROPIUM BROMIDE MONOHYDRATE
     Dosage: UNK
     Route: 065
  21. CYCLOPHOSPHAMIDE. [Suspect]
     Active Substance: CYCLOPHOSPHAMIDE
     Indication: HER2 POSITIVE BREAST CANCER
     Dosage: 980 MILLIGRAM, Q3W
     Route: 042
     Dates: start: 20170331, end: 20170601
  22. VASTAREL LM [Concomitant]
     Dosage: UNK (DRUG REPORTED AS VASTAREL LM)
     Route: 065
  23. FENTANYL. [Concomitant]
     Active Substance: FENTANYL
     Dosage: UNK, ONGOING = NOT CHECKED
     Dates: start: 20171004, end: 20171004
  24. ESOMEPRAZOLE. [Concomitant]
     Active Substance: ESOMEPRAZOLE MAGNESIUM
     Dosage: UNK, ONGOING = NOT CHECKED
     Dates: start: 20171004, end: 20171004
  25. ROCURONIUM [Concomitant]
     Active Substance: ROCURONIUM BROMIDE
     Dosage: UNK, ONGOING = NOT CHECKED
     Dates: start: 20171004, end: 20171004
  26. LEVOFLOXACIN. [Concomitant]
     Active Substance: LEVOFLOXACIN
     Indication: PNEUMONIA
     Dosage: UNK, ONGOING = NOT CHECKED
     Dates: start: 20180222, end: 20180224
  27. TRASTUZUMAB. [Suspect]
     Active Substance: TRASTUZUMAB
     Indication: HER2 POSITIVE BREAST CANCER
     Dosage: 600 MILLIGRAM/SQ. METER, 3XW
     Route: 058
     Dates: start: 20170622, end: 20180716
  28. ANASTROZOLE. [Suspect]
     Active Substance: ANASTROZOLE
     Indication: HER2 POSITIVE BREAST CANCER
     Dosage: 1 MILLIGRAM, QD
     Route: 048
     Dates: start: 20171106
  29. IBUPROFEN. [Concomitant]
     Active Substance: IBUPROFEN
     Dosage: UNK
     Route: 065
     Dates: start: 20180312, end: 20180316
  30. METOCLOPRAMIDA                     /00041901/ [Concomitant]
     Active Substance: METOCLOPRAMIDE
     Dosage: UNK
     Route: 065
     Dates: start: 20170327
  31. AMOXICILINA                        /00249601/ [Concomitant]
     Active Substance: AMOXICILLIN
     Indication: PNEUMONIA
     Dosage: UNK, ONGOING = NOT CHECKED
     Dates: start: 20180215, end: 20180615
  32. PROPOFOL. [Concomitant]
     Active Substance: PROPOFOL
     Dosage: UNK, ONGOING = NOT CHECKED
     Dates: start: 20171004, end: 20171004
  33. ESCITALOPRAM [Concomitant]
     Active Substance: ESCITALOPRAM OXALATE
     Dosage: UNK, ONGOING = CHECKED
     Dates: start: 20190212
  34. CALCIUM [Concomitant]
     Active Substance: CALCIUM
     Dosage: UNK, ONGOING = CHECKED
  35. DOXORUBICIN [Suspect]
     Active Substance: DOXORUBICIN
     Indication: HER2 POSITIVE BREAST CANCER
     Dosage: 98 MILLIGRAM, Q3W
     Route: 042
     Dates: start: 20170331, end: 20170601
  36. TAXOL [Suspect]
     Active Substance: PACLITAXEL
     Indication: HER2 POSITIVE BREAST CANCER
     Dosage: 80 MILLIGRAM/SQ. METER, QW
     Route: 042
     Dates: start: 20170622, end: 20170907
  37. CYTOXAN [Suspect]
     Active Substance: CYCLOPHOSPHAMIDE
     Indication: HER2 POSITIVE BREAST CANCER
     Dosage: 980 MILLIGRAM, 3XW
     Route: 042
     Dates: start: 20170331, end: 20170601
  38. LACTULOSE. [Concomitant]
     Active Substance: LACTULOSE
     Dosage: UNK
     Route: 065
     Dates: start: 20170601
  39. DEXAMETHASONE. [Concomitant]
     Active Substance: DEXAMETHASONE
     Dosage: UNK
     Route: 065
     Dates: start: 20170328
  40. TRAMADOL. [Concomitant]
     Active Substance: TRAMADOL
     Dosage: UNK ONGOING = NOT CHECKED
     Dates: start: 20170717, end: 20170721
  41. TAZOBACTAM [Concomitant]
     Active Substance: TAZOBACTAM
     Indication: PNEUMONIA
     Dosage: UNK, ONGOING = NOT CHECKED
     Dates: start: 20180219, end: 20180221
  42. FAKTU [Concomitant]
     Dosage: UNK, ONGOING = CHECKED
     Dates: start: 20190125
  43. AZITHROMYCIN ANHYDROUS. [Concomitant]
     Active Substance: AZITHROMYCIN ANHYDROUS
     Indication: PNEUMONIA
     Dosage: UNK, ONGOING = NOT CHECKED
     Dates: start: 20180214, end: 20180216
  44. PARACETAMOL [Concomitant]
     Active Substance: ACETAMINOPHEN
     Dosage: UNK, ONGOING = NOT CHECKED
     Dates: start: 20171004, end: 20171004

REACTIONS (1)
  - Pneumonia [Recovered/Resolved]

NARRATIVE: CASE EVENT DATE: 20180212
